FAERS Safety Report 4979073-3 (Version None)
Quarter: 2006Q2

REPORT INFORMATION
  Report Type: 
  Country: None (occurrence: None)
  Receive Date: 20060417
  Receipt Date: 20060407
  Transmission Date: 20061013
  Serious: Yes (Life-Threatening, Other)
  Sender: FDA-Public Use
  Company Number: 222990

PATIENT
  Age: 84 Year
  Sex: Male

DRUGS (8)
  1. ACTIVACIN(ALTEPLASE) PWDR + SOLVENT,INFUSION SOLN [Suspect]
     Indication: CEREBRAL ARTERY EMBOLISM
     Dosage: 30 MU, SINGLE, INTRAVENOUS
     Route: 042
     Dates: start: 20060303, end: 20060303
  2. ASPIRIN [Concomitant]
  3. RADICUT (EDARAVONE) [Concomitant]
  4. NICARDIPINE HCL [Concomitant]
  5. GLYCEOL (GLYCERIN) [Concomitant]
  6. PRIMPERAN ELIXIR [Concomitant]
  7. OMEPRAZOLE [Concomitant]
  8. TICLOPIDINE (TICLOPIDINE HYDROCHLORIDE) [Concomitant]

REACTIONS (13)
  - ACTIVATED PARTIAL THROMBOPLASTIN TIME PROLONGED [None]
  - APALLIC SYNDROME [None]
  - BLOOD PRESSURE INCREASED [None]
  - BODY TEMPERATURE DECREASED [None]
  - BODY TEMPERATURE INCREASED [None]
  - BRAIN OEDEMA [None]
  - CEREBRAL HAEMATOMA [None]
  - HAEMATOCRIT DECREASED [None]
  - HAEMOGLOBIN DECREASED [None]
  - HAEMORRHAGIC CEREBRAL INFARCTION [None]
  - LABORATORY TEST ABNORMAL [None]
  - RED BLOOD CELL COUNT DECREASED [None]
  - UPPER GASTROINTESTINAL HAEMORRHAGE [None]
